FAERS Safety Report 7132417-9 (Version None)
Quarter: 2010Q4

REPORT INFORMATION
  Report Type: 
  Country: None (occurrence: None)
  Receive Date: 20101202
  Receipt Date: 20101124
  Transmission Date: 20110411
  Serious: Yes (Other)
  Sender: FDA-Public Use
  Company Number: BR-ROCHE-735800

PATIENT
  Sex: Male
  Weight: 110 kg

DRUGS (5)
  1. RIVOTRIL [Suspect]
     Indication: PARANOIA
     Dosage: DOSE REPORTER AS: 2 MG
     Route: 065
     Dates: start: 20000101
  2. LOSARTAN POTASSIUM [Concomitant]
     Dosage: DRUG REPORTED: VALTRIAN (LOSARTAN POTASSIUM)
  3. PONDERA [Concomitant]
     Dosage: 1 TAB A DAY IN MORNING
  4. RISPERIDONE [Concomitant]
  5. PROCTYL [Concomitant]
     Dosage: FREQUENCY: 1 PER DAY/ AFTER DEFECATION

REACTIONS (5)
  - DRUG INEFFECTIVE [None]
  - HAEMORRHOIDS [None]
  - NERVOUSNESS [None]
  - PARANOIA [None]
  - POLYP [None]
